FAERS Safety Report 5473729-4 (Version None)
Quarter: 2007Q3

REPORT INFORMATION
  Report Type: 
  Country: None (occurrence: None)
  Receive Date: 20070831
  Receipt Date: 20070615
  Transmission Date: 20080115
  Serious: No
  Sender: FDA-Public Use
  Company Number: 243085

PATIENT
  Sex: Male

DRUGS (4)
  1. LUCENTIS [Suspect]
     Indication: MACULAR DEGENERATION
     Dosage: INTRAVITREAL
     Dates: start: 20070301
  2. COREG [Concomitant]
  3. ALTACE [Concomitant]
  4. SPIRONOLACTONE [Concomitant]

REACTIONS (2)
  - HALLUCINATION [None]
  - VISUAL ACUITY REDUCED [None]
